FAERS Safety Report 10084612 (Version 3)
Quarter: 2014Q2

REPORT INFORMATION
  Report Type: Report from Study
  Country: US (occurrence: US)
  Receive Date: 20140417
  Receipt Date: 20140515
  Transmission Date: 20141212
  Serious: Yes (Hospitalization, Other)
  Sender: FDA-Public Use
  Company Number: US-BRISTOL-MYERS SQUIBB COMPANY-20614681

PATIENT
  Age: 68 Year
  Sex: Female
  Weight: 58 kg

DRUGS (7)
  1. IPILIMUMAB [Suspect]
     Indication: SQUAMOUS CELL CARCINOMA OF THE CERVIX
     Dosage: 10 MG/KG OVER 90 MINS ON D1(CYCLE=21DAY),MAINTAIN :Q12 WKS.TOTAL DOSE -574MG. LAST DOSE ON 12MAR14.
     Route: 042
     Dates: start: 20140130, end: 20140312
  2. PREDNISOLONE [Concomitant]
  3. ADVIL [Concomitant]
  4. AMBIEN [Concomitant]
  5. NEURONTIN [Concomitant]
  6. OXYCODONE [Concomitant]
  7. SYNTHROID [Concomitant]

REACTIONS (5)
  - Diarrhoea [Recovered/Resolved]
  - Dehydration [Recovered/Resolved]
  - Rectal haemorrhage [Recovered/Resolved]
  - Colitis [Recovered/Resolved]
  - Deep vein thrombosis [Recovered/Resolved]
